FAERS Safety Report 5672826-8 (Version None)
Quarter: 2008Q1

REPORT INFORMATION
  Report Type: 
  Country: None (occurrence: None)
  Receive Date: 20080317
  Receipt Date: 20080304
  Transmission Date: 20080703
  Serious: Yes (Hospitalization)
  Sender: FDA-Public Use
  Company Number: B0512046A

PATIENT
  Age: 73 Year
  Sex: Male

DRUGS (4)
  1. VALACYCLOVIR [Suspect]
     Indication: HERPES ZOSTER
     Dosage: 1 GRAM (S) / THREE TIMES PER DAY / ORAL
     Route: 048
  2. NSAID (FORMULATION UNKNOWN) (NSAID) [Suspect]
     Indication: HERPES ZOSTER
  3. ANGIOTENSION II ANTAGONIST (FORMULATION UNKNOWN) (ANGIOTENSIN II ANTAG [Suspect]
     Indication: CARDIAC DISORDER
  4. BETA-BLOCKER [Concomitant]

REACTIONS (6)
  - ANAEMIA [None]
  - ANURIA [None]
  - DRUG LEVEL ABOVE THERAPEUTIC [None]
  - HAEMODIALYSIS [None]
  - OEDEMA [None]
  - RENAL FAILURE ACUTE [None]
